FAERS Safety Report 23162832 (Version 2)
Quarter: 2023Q4

REPORT INFORMATION
  Report Type: Report from Study
  Country: US (occurrence: US)
  Receive Date: 20231109
  Receipt Date: 20231122
  Transmission Date: 20240110
  Serious: No
  Sender: FDA-Public Use
  Company Number: US-AMGEN-USASP2023198145

PATIENT
  Age: 71 Year
  Sex: Female

DRUGS (1)
  1. REPATHA [Suspect]
     Active Substance: EVOLOCUMAB
     Indication: Cardiovascular disorder
     Dosage: 420 MILLIGRAM, QMO
     Route: 058
     Dates: start: 202309

REACTIONS (9)
  - Drug dose omission by device [Unknown]
  - Neck injury [Recovering/Resolving]
  - Sleep disorder due to general medical condition, insomnia type [Recovered/Resolved]
  - Muscle spasms [Recovering/Resolving]
  - Arthritis [Not Recovered/Not Resolved]
  - Tendonitis [Unknown]
  - Finger deformity [Unknown]
  - Muscle disorder [Unknown]
  - Vision blurred [Unknown]

NARRATIVE: CASE EVENT DATE: 20230101
